FAERS Safety Report 8216965-6 (Version None)
Quarter: 2012Q1

REPORT INFORMATION
  Report Type: 
  Country: None (occurrence: None)
  Receive Date: 20120319
  Receipt Date: 20120307
  Transmission Date: 20120608
  Serious: Yes (Hospitalization)
  Sender: FDA-Public Use
  Company Number: GB-BRISTOL-MYERS SQUIBB COMPANY-16442717

PATIENT
  Age: 66 Year
  Sex: Male
  Weight: 83 kg

DRUGS (13)
  1. OMEPRAZOLE [Concomitant]
     Dates: start: 20091026
  2. AMLODIPINE [Concomitant]
     Dates: start: 20091211
  3. ACETAMINOPHEN [Concomitant]
     Dates: start: 20110810
  4. LORAZEPAM [Concomitant]
     Dates: start: 20120220
  5. IPILIMUMAB [Suspect]
     Indication: SMALL CELL LUNG CANCER STAGE UNSPECIFIED
     Dates: start: 20120105
  6. SIMVASTATIN [Concomitant]
     Dates: start: 20090910
  7. PREDNISOLONE [Concomitant]
     Dates: start: 20120223
  8. NYSTATIN [Concomitant]
     Dates: start: 20120228
  9. ETOPOSIDE [Suspect]
     Indication: SMALL CELL LUNG CANCER STAGE UNSPECIFIED
     Dates: start: 20120106
  10. CARBOPLATIN [Suspect]
     Indication: SMALL CELL LUNG CANCER STAGE UNSPECIFIED
     Dates: start: 20120106
  11. RAMIPRIL [Concomitant]
     Dates: start: 20100921
  12. BISOPROLOL FUMARATE [Concomitant]
     Dates: start: 20090910
  13. ASPIRIN [Concomitant]
     Dates: start: 20090910

REACTIONS (3)
  - LUNG INFECTION [None]
  - ANAEMIA [None]
  - DYSPNOEA [None]
